FAERS Safety Report 16964487 (Version 1)
Quarter: 2019Q4

REPORT INFORMATION
  Report Type: Report from Study
  Country: None (occurrence: BR)
  Receive Date: 20191028
  Receipt Date: 20191028
  Transmission Date: 20200122
  Serious: Yes (Hospitalization, Other)
  Sender: FDA-Public Use
  Company Number: BR-ABBVIE-19K-020-2805502-00

PATIENT
  Sex: Female
  Weight: 75 kg

DRUGS (1)
  1. HUMIRA [Suspect]
     Active Substance: ADALIMUMAB
     Indication: RHEUMATOID ARTHRITIS
     Route: 058
     Dates: start: 20160915, end: 20190421

REACTIONS (11)
  - Tooth loss [Unknown]
  - Musculoskeletal deformity [Unknown]
  - Swelling face [Unknown]
  - Post procedural infection [Recovered/Resolved]
  - Immunodeficiency [Unknown]
  - Cellulitis [Unknown]
  - Tooth infection [Unknown]
  - Purulence [Unknown]
  - Endodontic procedure [Unknown]
  - Meningitis [Unknown]
  - Rheumatoid arthritis [Unknown]

NARRATIVE: CASE EVENT DATE: 201904
